FAERS Safety Report 8611074 (Version 3)
Quarter: 2013Q3

REPORT INFORMATION
  Report Type: Spontaneous
  Country: US (occurrence: US)
  Receive Date: 20120612
  Receipt Date: 20130709
  Transmission Date: 20140515
  Serious: No
  Sender: FDA-Public Use
  Company Number: US-ASTRAZENECA-2012SE36302

PATIENT
  Age: 65 Year
  Sex: Female
  Weight: 55.3 kg

DRUGS (3)
  1. SYMBICORT PMDI [Suspect]
     Indication: ASTHMA
     Dosage: 160 MCG, 1 PUFF TWO TIMES A DAY
     Route: 055
  2. SYMBICORT PMDI [Suspect]
     Indication: ASTHMA
     Dosage: 160 MCG, 1 PUFF DAILY
     Route: 055
     Dates: start: 20130607
  3. SINGULAIR [Concomitant]

REACTIONS (9)
  - Dyspnoea [Unknown]
  - Memory impairment [Unknown]
  - Chest discomfort [Unknown]
  - Multiple allergies [Unknown]
  - Mood altered [Unknown]
  - Anxiety [Unknown]
  - Off label use [Unknown]
  - Intentional drug misuse [Unknown]
  - Drug dose omission [Unknown]
